FAERS Safety Report 18436278 (Version 1)
Quarter: 2020Q4

REPORT INFORMATION
  Report Type: Spontaneous
  Country: US (occurrence: US)
  Receive Date: 20201028
  Receipt Date: 20201028
  Transmission Date: 20210114
  Serious: No
  Sender: FDA-Public Use
  Company Number: US-PFIZER INC-2020415242

PATIENT
  Age: 36 Year
  Sex: Female
  Weight: 77.11 kg

DRUGS (1)
  1. DESVENLAFAXINE SUCCINATE MONOHYDRATE [Suspect]
     Active Substance: DESVENLAFAXINE SUCCINATE
     Indication: DEPRESSION
     Dosage: 50 MG

REACTIONS (3)
  - Drug ineffective [Unknown]
  - Malaise [Unknown]
  - General physical health deterioration [Unknown]
